FAERS Safety Report 4677715-3 (Version None)
Quarter: 2005Q2

REPORT INFORMATION
  Report Type: 
  Country: None (occurrence: None)
  Receive Date: 20050527
  Receipt Date: 20050507
  Transmission Date: 20051028
  Serious: Yes (Death)
  Sender: FDA-Public Use
  Company Number: 11080

PATIENT
  Age: 65 Year
  Sex: Female

DRUGS (1)
  1. MORPHINE [Suspect]
     Dosage: PO
     Route: 048

REACTIONS (4)
  - ACCIDENTAL OVERDOSE [None]
  - FEELING COLD [None]
  - LOSS OF CONSCIOUSNESS [None]
  - RESPIRATORY FAILURE [None]
